FAERS Safety Report 6840435-0 (Version None)
Quarter: 2010Q3

REPORT INFORMATION
  Report Type: 
  Country: None (occurrence: None)
  Receive Date: 20100714
  Receipt Date: 20100706
  Transmission Date: 20110219
  Serious: Yes (Hospitalization, Other)
  Sender: FDA-Public Use
  Company Number: IT-JNJFOC-20100505695

PATIENT
  Sex: Female

DRUGS (4)
  1. TOPAMAX [Suspect]
     Indication: DEPRESSION
     Route: 048
  2. DEPAKENE [Suspect]
     Indication: DEPRESSION
     Route: 048
  3. XERISTAR [Suspect]
     Indication: DEPRESSION
     Route: 048
  4. LEXOTAN [Suspect]
     Indication: DEPRESSION
     Route: 048

REACTIONS (3)
  - ALCOHOL ABUSE [None]
  - DRUG ABUSE [None]
  - SELF INJURIOUS BEHAVIOUR [None]
